FAERS Safety Report 10660557 (Version 2)
Quarter: 2015Q1

REPORT INFORMATION
  Report Type: Spontaneous
  Country: US (occurrence: US)
  Receive Date: 20141217
  Receipt Date: 20150122
  Transmission Date: 20150720
  Serious: Yes (Death, Life-Threatening, Hospitalization)
  Sender: FDA-Public Use
  Company Number: US-B.I. PHARMACEUTICALS,INC./RIDGEFIELD-2014-BI-60636BP

PATIENT
  Sex: Male
  Weight: 104.33 kg

DRUGS (1)
  1. TRADJENTA [Suspect]
     Active Substance: LINAGLIPTIN
     Indication: TYPE 2 DIABETES MELLITUS
     Dosage: 5 MG
     Route: 048

REACTIONS (5)
  - Lower limb fracture [Fatal]
  - Wound [Fatal]
  - Wound infection [Fatal]
  - Renal failure [Fatal]
  - Infection [Fatal]

NARRATIVE: CASE EVENT DATE: 20141003
